FAERS Safety Report 7024382-X (Version None)
Quarter: 2010Q4

REPORT INFORMATION
  Report Type: 
  Country: None (occurrence: None)
  Receive Date: 20101001
  Receipt Date: 20100927
  Transmission Date: 20110411
  Serious: Yes (Life-Threatening, Other)
  Sender: FDA-Public Use
  Company Number: US-RB-011500-10

PATIENT
  Age: 64 Year
  Sex: Female

DRUGS (2)
  1. SUBOXONE TABLET [Suspect]
     Indication: PRODUCT USED FOR UNKNOWN INDICATION
     Dosage: UNKNOWN DOSING DETAILS
     Route: 065
  2. CORTISONE SHOT [Suspect]
     Indication: PRODUCT USED FOR UNKNOWN INDICATION
     Dosage: UNKNOWN DOSING DETAILS
     Route: 065

REACTIONS (8)
  - ARTHROPATHY [None]
  - BACK PAIN [None]
  - BRAIN NEOPLASM [None]
  - BURSITIS [None]
  - DIZZINESS [None]
  - INNER EAR DISORDER [None]
  - LOSS OF CONSCIOUSNESS [None]
  - PAIN IN EXTREMITY [None]
